FAERS Safety Report 15209805 (Version 1)
Quarter: 2018Q3

REPORT INFORMATION
  Report Type: Report from Study
  Country: US (occurrence: US)
  Receive Date: 20180727
  Receipt Date: 20180727
  Transmission Date: 20181010
  Serious: Yes (Hospitalization)
  Sender: FDA-Public Use
  Company Number: US-ELI_LILLY_AND_COMPANY-US201806007438

PATIENT
  Age: 76 Year
  Sex: Female

DRUGS (1)
  1. ABEMACICLIB [Suspect]
     Active Substance: ABEMACICLIB
     Indication: NEOPLASM MALIGNANT
     Dosage: 150 MG, UNKNOWN
     Route: 048
     Dates: start: 20180618, end: 20180709

REACTIONS (13)
  - Dehydration [Not Recovered/Not Resolved]
  - Dysgeusia [Recovering/Resolving]
  - Retching [Recovered/Resolved]
  - Cough [Recovered/Resolved]
  - Weight decreased [Unknown]
  - Decreased appetite [Not Recovered/Not Resolved]
  - Diarrhoea [Unknown]
  - Hypokalaemia [Recovering/Resolving]
  - Hypotension [Not Recovered/Not Resolved]
  - Nausea [Recovering/Resolving]
  - Constipation [Recovered/Resolved]
  - Nausea [Not Recovered/Not Resolved]
  - Asthenia [Not Recovered/Not Resolved]

NARRATIVE: CASE EVENT DATE: 20180618
